FAERS Safety Report 7693707-4 (Version None)
Quarter: 2011Q3

REPORT INFORMATION
  Report Type: 
  Country: None (occurrence: None)
  Receive Date: 20110819
  Receipt Date: 20110810
  Transmission Date: 20111222
  Serious: Yes (Other)
  Sender: FDA-Public Use
  Company Number: FR-JNJFOC-20110805679

PATIENT
  Age: 43 Year
  Sex: Male
  Weight: 75 kg

DRUGS (8)
  1. REMICADE [Suspect]
     Indication: ANKYLOSING SPONDYLITIS
     Route: 042
     Dates: start: 20110420, end: 20110420
  2. RIFAMPIN AND ISONIAZID [Concomitant]
     Route: 065
  3. ACETAMINOPHEN [Concomitant]
     Route: 065
  4. SOLU-MEDROL [Concomitant]
     Indication: PREMEDICATION
     Route: 065
  5. CETIRIZINE HCL [Concomitant]
     Indication: PREMEDICATION
     Route: 065
  6. REMICADE [Suspect]
     Route: 042
     Dates: start: 20110518, end: 20110518
  7. REMICADE [Suspect]
     Route: 042
     Dates: start: 20070101
  8. NEXIUM [Concomitant]
     Route: 065

REACTIONS (6)
  - INFUSION RELATED REACTION [None]
  - HYPERSENSITIVITY [None]
  - MALAISE [None]
  - COUGH [None]
  - DYSPNOEA [None]
  - CHILLS [None]
